APPROVED DRUG PRODUCT: VIGABATRIN
Active Ingredient: VIGABATRIN
Strength: 500MG/PACKET
Dosage Form/Route: FOR SOLUTION;ORAL
Application: A213390 | Product #001
Applicant: PROPEL PHARMA CORP
Approved: Jul 29, 2021 | RLD: No | RS: No | Type: DISCN